FAERS Safety Report 20930695 (Version 7)
Quarter: 2023Q1

REPORT INFORMATION
  Report Type: Report from Study
  Country: US (occurrence: US)
  Receive Date: 20220608
  Receipt Date: 20230209
  Transmission Date: 20230417
  Serious: Yes (Other)
  Sender: FDA-Public Use
  Company Number: US-NOVARTISTESTPH-NVSC2022US129141

PATIENT
  Sex: Male

DRUGS (2)
  1. ENTRESTO [Suspect]
     Active Substance: SACUBITRIL\VALSARTAN
     Indication: Cardiac failure chronic
     Dosage: UNK
     Route: 065
  2. ENTRESTO [Suspect]
     Active Substance: SACUBITRIL\VALSARTAN
     Dosage: 0.5 DOSAGE FORM (PILLS)
     Route: 065

REACTIONS (8)
  - Cardiorenal syndrome [Unknown]
  - Cardiomyopathy [Unknown]
  - Renal cancer [Unknown]
  - Cardiac failure [Unknown]
  - Ventricular tachycardia [Unknown]
  - Renal failure [Not Recovered/Not Resolved]
  - Cardiac output decreased [Unknown]
  - Wrong technique in product usage process [Unknown]
